FAERS Safety Report 4866031-2 (Version None)
Quarter: 2005Q4

REPORT INFORMATION
  Report Type: 
  Country: None (occurrence: None)
  Receive Date: 20051221
  Receipt Date: 20051207
  Transmission Date: 20060501
  Serious: Yes (Death, Hospitalization)
  Sender: FDA-Public Use
  Company Number: 02100-JPN-05-0116

PATIENT
  Age: 63 Year
  Sex: Female

DRUGS (8)
  1. CILOSTAZOL [Suspect]
     Indication: ARTERIOSCLEROSIS
     Dosage: 150 MG/200 MG ORAL
     Route: 048
     Dates: start: 20030211, end: 20050217
  2. CILOSTAZOL [Suspect]
     Indication: ARTERIOSCLEROSIS
     Dosage: 150 MG/200 MG ORAL
     Route: 048
     Dates: start: 20050218, end: 20050225
  3. GLICLAZIDE [Concomitant]
  4. METFORMIN [Concomitant]
  5. INDAPAMIDE [Concomitant]
  6. FOLIC ACID [Concomitant]
  7. ALFACALCIDOL [Concomitant]
  8. MAGNESIUM OXIDE [Concomitant]

REACTIONS (10)
  - ANXIETY [None]
  - ATRIAL FIBRILLATION [None]
  - CARDIAC FAILURE CONGESTIVE [None]
  - CARDIOGENIC SHOCK [None]
  - CONDITION AGGRAVATED [None]
  - HYPERCHOLESTEROLAEMIA [None]
  - LIVER DISORDER [None]
  - PULMONARY EMBOLISM [None]
  - RESPIRATORY FAILURE [None]
  - UPPER RESPIRATORY TRACT INFECTION [None]
